FAERS Safety Report 19613110 (Version 1)
Quarter: 2021Q3

REPORT INFORMATION
  Report Type: Spontaneous
  Country: US (occurrence: US)
  Receive Date: 20210727
  Receipt Date: 20210727
  Transmission Date: 20211014
  Serious: Yes (Death)
  Sender: FDA-Public Use
  Company Number: US-JNJFOC-20210752050

PATIENT
  Sex: Male

DRUGS (1)
  1. DARZALEX [Suspect]
     Active Substance: DARATUMUMAB
     Indication: SYSTEMIC LUPUS ERYTHEMATOSUS
     Route: 041

REACTIONS (3)
  - Product use in unapproved indication [Unknown]
  - Death [Fatal]
  - Off label use [Unknown]
